FAERS Safety Report 15116760 (Version 1)
Quarter: 2018Q3

REPORT INFORMATION
  Report Type: Spontaneous
  Country: US (occurrence: US)
  Receive Date: 20180612
  Receipt Date: 20180612
  Transmission Date: 20181010
  Serious: Yes (Hospitalization)
  Sender: FDA-Public Use
  Company Number: None

PATIENT
  Age: 66 Year
  Sex: Female

DRUGS (12)
  1. DOCUSATE SOD LIQ [Concomitant]
  2. VITAMIN C [Concomitant]
     Active Substance: ASCORBIC ACID
  3. CALCIUM [Concomitant]
     Active Substance: CALCIUM
  4. HUMIRA [Suspect]
     Active Substance: ADALIMUMAB
     Indication: RHEUMATOID ARTHRITIS
     Dosage: ?          OTHER FREQUENCY:EVERY 14 DAYS ;?
     Route: 058
     Dates: start: 20160817
  5. AMLODIPINE [Concomitant]
     Active Substance: AMLODIPINE BESYLATE
  6. PRILOSEC CAP [Concomitant]
  7. METOPROLOL TAB [Concomitant]
  8. SIMVASTATIN TAB [Concomitant]
     Active Substance: SIMVASTATIN
  9. PLAQUENIL TAB [Concomitant]
  10. SPIRONOLACT TAB [Concomitant]
  11. VITAMIN E CAP [Concomitant]
  12. VITAMIN D CAP [Concomitant]

REACTIONS (1)
  - Upper limb fracture [None]

NARRATIVE: CASE EVENT DATE: 20180509
